FAERS Safety Report 10446887 (Version 1)
Quarter: 2014Q3

REPORT INFORMATION
  Report Type: Spontaneous
  Country: US (occurrence: None)
  Receive Date: 20140910
  Receipt Date: 20140910
  Transmission Date: 20150326
  Serious: Yes (Hospitalization)
  Sender: FDA-Public Use
  Company Number: None

PATIENT
  Age: 70 Year
  Sex: Male
  Weight: 75.9 kg

DRUGS (15)
  1. CLOPIDOGREL [Suspect]
     Active Substance: CLOPIDOGREL BISULFATE
     Route: 048
  2. POTASSIUM CHLORIDE. [Concomitant]
     Active Substance: POTASSIUM CHLORIDE
  3. DUONEBS [Concomitant]
  4. DILTIAZEM [Concomitant]
     Active Substance: DILTIAZEM
  5. FAMOTIDINE. [Concomitant]
     Active Substance: FAMOTIDINE
  6. BISACODYL. [Concomitant]
     Active Substance: BISACODYL
  7. APIXABAN 5 MG BRISTOL MYERS SQUIBB CO [Suspect]
     Active Substance: APIXABAN
     Indication: ATRIAL FIBRILLATION
     Route: 048
     Dates: start: 20140808, end: 20140905
  8. CLONIDINE. [Concomitant]
     Active Substance: CLONIDINE
  9. DOCUSATE [Concomitant]
     Active Substance: DOCUSATE
  10. AMLODIPINE [Concomitant]
     Active Substance: AMLODIPINE BESYLATE
  11. ACETAMINOPEHN W/ HYDROCODONE [Concomitant]
     Active Substance: ACETAMINOPHEN\HYDROCODONE
  12. ASPIRIN. [Concomitant]
     Active Substance: ASPIRIN
  13. FUROSEMIDE. [Concomitant]
     Active Substance: FUROSEMIDE
  14. METOPROLOL [Concomitant]
     Active Substance: METOPROLOL
  15. ATORVASTATIN [Concomitant]
     Active Substance: ATORVASTATIN

REACTIONS (1)
  - Pulmonary alveolar haemorrhage [None]

NARRATIVE: CASE EVENT DATE: 20140905
